FAERS Safety Report 6390981-1 (Version None)
Quarter: 2009Q4

REPORT INFORMATION
  Report Type: 
  Country: None (occurrence: None)
  Receive Date: 20091006
  Receipt Date: 20090925
  Transmission Date: 20100525
  Serious: Yes (Death, Other)
  Sender: FDA-Public Use
  Company Number: US-ELI_LILLY_AND_COMPANY-US200909003969

PATIENT
  Age: 47 Year
  Sex: Male

DRUGS (19)
  1. CYMBALTA [Suspect]
     Indication: DIABETIC NEUROPATHY
     Dosage: 120 MG, DAILY (1/D)
  2. DICLOFENAC SODIUM [Concomitant]
     Indication: DIABETES MELLITUS
  3. LEVEMIR [Concomitant]
     Indication: DIABETES MELLITUS
  4. NOVOLOG MIX 70/30 [Concomitant]
     Indication: DIABETES MELLITUS
  5. NOVOLOG [Concomitant]
     Indication: DIABETES MELLITUS
  6. TRIAMCINOLONE [Concomitant]
     Indication: PSORIASIS
     Route: 061
  7. BETAMETHASONE [Concomitant]
     Indication: PSORIASIS
     Route: 061
  8. DARVOCET-N 100 [Concomitant]
     Indication: PAIN
     Dosage: 100 MG, UNK
  9. PHENERGAN [Concomitant]
     Indication: NAUSEA
     Dosage: 25 MG, UNK
  10. REGLAN [Concomitant]
     Indication: DIABETIC GASTROPARESIS
     Dosage: 5 MG, 4/D
  11. LORAZEPAM [Concomitant]
     Dosage: 1 MG, 3/D
  12. AMBIEN [Concomitant]
     Dosage: 10 MG, EACH EVENING
  13. LIPITOR [Concomitant]
     Indication: BLOOD CHOLESTEROL
  14. GABAPENTIN [Concomitant]
  15. LEVOTHYROXINE SODIUM [Concomitant]
     Indication: HYPOTHYROIDISM
     Dosage: 25 MG, UNK
  16. FLEXERIL [Concomitant]
     Indication: MUSCLE SPASMS
     Dosage: 10 MG, UNK
  17. ACCUPRIL [Concomitant]
     Indication: HYPERTENSION
     Dosage: 10 MG, DAILY (1/D)
  18. TRAZODONE [Concomitant]
     Dosage: 150 MG, EACH EVENING
  19. LEXAPRO [Concomitant]
     Dosage: 30 MG, UNK

REACTIONS (5)
  - CARDIAC ARREST [None]
  - DIABETES MELLITUS INADEQUATE CONTROL [None]
  - HYPOGLYCAEMIA [None]
  - LOSS OF CONSCIOUSNESS [None]
  - RESPIRATORY ARREST [None]
